FAERS Safety Report 14685580 (Version 1)
Quarter: 2018Q1

REPORT INFORMATION
  Report Type: Spontaneous
  Country: GB (occurrence: GB)
  Receive Date: 20180327
  Receipt Date: 20180327
  Transmission Date: 20180509
  Serious: Yes (Other)
  Sender: FDA-Public Use
  Company Number: GB-BAYER-2018-053587

PATIENT
  Age: 31 Year
  Sex: Female
  Weight: 61.68 kg

DRUGS (3)
  1. CITALOPRAM [Concomitant]
     Active Substance: CITALOPRAM HYDROBROMIDE
  2. MIRENA [Suspect]
     Active Substance: LEVONORGESTREL
     Indication: CONTRACEPTION
  3. MIRENA [Suspect]
     Active Substance: LEVONORGESTREL
     Indication: CONTRACEPTION
     Dosage: 20 MCG/24HR, CONT
     Route: 015
     Dates: start: 20161007, end: 20170906

REACTIONS (9)
  - Vaginal discharge [Not Recovered/Not Resolved]
  - Migraine [Recovered/Resolved]
  - Menstruation irregular [Recovered/Resolved with Sequelae]
  - Anxiety [Recovered/Resolved with Sequelae]
  - Restless legs syndrome [Recovered/Resolved]
  - Depression suicidal [Recovered/Resolved with Sequelae]
  - Acne [Recovered/Resolved]
  - Dizziness [Recovered/Resolved with Sequelae]
  - Dysmenorrhoea [Recovered/Resolved]
